FAERS Safety Report 22691206 (Version 2)
Quarter: 2023Q4

REPORT INFORMATION
  Report Type: Spontaneous
  Country: US (occurrence: US)
  Receive Date: 20230711
  Receipt Date: 20231206
  Transmission Date: 20240110
  Serious: No
  Sender: FDA-Public Use
  Company Number: US-BAXTER-2023BAX025888

PATIENT
  Age: 75 Year
  Sex: Female

DRUGS (2)
  1. DIANEAL FOR PERITONEAL DIALYSIS [Suspect]
     Active Substance: ANHYDROUS DEXTROSE\CALCIUM CHLORIDE\MAGNESIUM CHLORIDE\SODIUM CHLORIDE\SODIUM LACTATE
     Indication: End stage renal disease
     Dosage: VIA CYCLER
     Route: 033
     Dates: start: 20230626, end: 20230703
  2. DIANEAL FOR PERITONEAL DIALYSIS [Suspect]
     Active Substance: ANHYDROUS DEXTROSE\CALCIUM CHLORIDE\MAGNESIUM CHLORIDE\SODIUM CHLORIDE\SODIUM LACTATE
     Indication: End stage renal disease
     Dosage: VIA CYCLER
     Route: 033
     Dates: start: 20230626, end: 20230626

REACTIONS (10)
  - Hypersensitivity [Unknown]
  - Skin swelling [Unknown]
  - Lymph node pain [Unknown]
  - Skin ulcer [Recovering/Resolving]
  - Pruritus [Unknown]
  - Erythema [Unknown]
  - Rash [Unknown]
  - Swelling face [Unknown]
  - Erythema [Unknown]
  - Drug intolerance [Unknown]

NARRATIVE: CASE EVENT DATE: 20230626
